FAERS Safety Report 13770500 (Version 1)
Quarter: 2017Q3

REPORT INFORMATION
  Report Type: Spontaneous
  Country: US (occurrence: US)
  Receive Date: 20170720
  Receipt Date: 20170720
  Transmission Date: 20171127
  Serious: Yes (Other)
  Sender: FDA-Public Use
  Company Number: None

PATIENT
  Age: 76 Year
  Sex: Female
  Weight: 54.48 kg

DRUGS (7)
  1. CENTRUM MULTI VIT/MINERALS [Concomitant]
     Active Substance: MINERALS\VITAMINS
  2. CLEANSE MORE LAXATIVE [Concomitant]
  3. ALPHAGAN P [Suspect]
     Active Substance: BRIMONIDINE TARTRATE
     Indication: GLAUCOMA
     Dosage: DROPS
  4. VITAMIN E [Concomitant]
     Active Substance: .ALPHA.-TOCOPHEROL
  5. RED YEAST RICE [Concomitant]
     Active Substance: DIETARY SUPPLEMENT
  6. CETIRILINE HYDROCHLORIDE [Concomitant]
  7. IRON [Concomitant]
     Active Substance: IRON

REACTIONS (4)
  - Ocular hyperaemia [None]
  - Vitreous detachment [None]
  - Macular oedema [None]
  - Vision blurred [None]
